FAERS Safety Report 17897477 (Version 1)
Quarter: 2020Q2

REPORT INFORMATION
  Report Type: Report from Study
  Country: US (occurrence: US)
  Receive Date: 20200616
  Receipt Date: 20200616
  Transmission Date: 20200714
  Serious: Yes (Other)
  Sender: FDA-Public Use
  Company Number: US-AMGEN-USASL2020003884

PATIENT
  Age: 64 Year
  Sex: Male

DRUGS (3)
  1. REPATHA [Suspect]
     Active Substance: EVOLOCUMAB
     Indication: HYPERCHOLESTEROLAEMIA
  2. REPATHA [Suspect]
     Active Substance: EVOLOCUMAB
     Indication: HYPERLIPIDAEMIA
     Dosage: 140 MILLIGRAM, Q2WK
     Route: 065
     Dates: start: 201912, end: 202003
  3. REPATHA [Suspect]
     Active Substance: EVOLOCUMAB
     Indication: CORONARY ARTERY DISEASE

REACTIONS (10)
  - Scar [Unknown]
  - Coronary arterial stent insertion [Unknown]
  - Skin exfoliation [Unknown]
  - Weight decreased [Unknown]
  - Skin mass [Not Recovered/Not Resolved]
  - Skin erosion [Unknown]
  - Balance disorder [Unknown]
  - Skin reaction [Unknown]
  - Dry skin [Unknown]
  - Neck mass [Unknown]

NARRATIVE: CASE EVENT DATE: 202002
